FAERS Safety Report 21487384 (Version 1)
Quarter: 2022Q4

REPORT INFORMATION
  Report Type: Report from Study
  Country: US (occurrence: GB)
  Receive Date: 20221020
  Receipt Date: 20221020
  Transmission Date: 20230113
  Serious: Yes (Death, Hospitalization, Congenital Anomaly, Other)
  Sender: FDA-Public Use
  Company Number: GB-009507513-2210GBR007626

PATIENT
  Age: 43 Year
  Sex: Female

DRUGS (46)
  1. EFAVIRENZ [Suspect]
     Active Substance: EFAVIRENZ
     Indication: HIV infection
     Dosage: 1 DOSAGE FORM, QD; 1 TABLET/CAPSULE, DAILY
     Route: 048
     Dates: start: 20171006
  2. EFAVIRENZ [Suspect]
     Active Substance: EFAVIRENZ
     Dosage: 1 DOSAGE FORM, QD
     Route: 048
     Dates: start: 20180205
  3. ISENTRESS [Suspect]
     Active Substance: RALTEGRAVIR POTASSIUM
     Indication: HIV infection
     Dosage: 800 MILLIGRAM, Q6H
     Route: 048
     Dates: start: 20100610
  4. EFAVIRENZ [Suspect]
     Active Substance: EFAVIRENZ
     Indication: Product used for unknown indication
     Dosage: 1 TABLET/CAPSULE, DAILY
     Route: 048
     Dates: start: 20171006
  5. EFAVIRENZ [Suspect]
     Active Substance: EFAVIRENZ
     Dosage: 1 DOSAGE FORM, QD
     Route: 048
     Dates: start: 20180205
  6. EFAVIRENZ [Suspect]
     Active Substance: EFAVIRENZ
     Dosage: 1 DF, QD
     Route: 048
     Dates: start: 20171006, end: 20180205
  7. LOPINAVIR\RITONAVIR [Suspect]
     Active Substance: LOPINAVIR\RITONAVIR
     Indication: Antiviral treatment
     Dosage: UNK
     Route: 048
     Dates: start: 20200610
  8. LOPINAVIR\RITONAVIR [Suspect]
     Active Substance: LOPINAVIR\RITONAVIR
     Indication: HIV infection
     Dosage: UNK
     Route: 048
     Dates: start: 20100610
  9. LOPINAVIR\RITONAVIR [Suspect]
     Active Substance: LOPINAVIR\RITONAVIR
     Dosage: UNK, QD;
     Route: 048
     Dates: start: 20100610, end: 20100610
  10. EMTRICITABINE\TENOFOVIR DISOPROXIL [Suspect]
     Active Substance: EMTRICITABINE\TENOFOVIR DISOPROXIL
     Indication: HIV infection
     Dosage: 1 TABLET/CAPSULE, DAILY
     Route: 048
     Dates: start: 20171006, end: 20180205
  11. EMTRICITABINE\TENOFOVIR DISOPROXIL [Suspect]
     Active Substance: EMTRICITABINE\TENOFOVIR DISOPROXIL
     Indication: Supplementation therapy
     Dosage: 1 TABLET/CAPSULE, DAILY
     Route: 065
     Dates: start: 20180205
  12. EMTRICITABINE\TENOFOVIR DISOPROXIL [Suspect]
     Active Substance: EMTRICITABINE\TENOFOVIR DISOPROXIL
     Dosage: 1 TABLET/CAPSULE, DAILY
     Route: 048
     Dates: start: 20171006
  13. FOLIC ACID [Suspect]
     Active Substance: FOLIC ACID
     Indication: Supplementation therapy
     Dosage: 1 DF, QD (1 TABLET/CAPSULE, DAILY)
     Route: 048
  14. INSULIN ASPART [Suspect]
     Active Substance: INSULIN ASPART
     Indication: Product used for unknown indication
     Dosage: UNK
     Route: 065
  15. KALETRA [Suspect]
     Active Substance: LOPINAVIR\RITONAVIR
     Indication: HIV infection
     Dosage: UNK
     Route: 048
     Dates: start: 20100610
  16. KALETRA [Suspect]
     Active Substance: LOPINAVIR\RITONAVIR
     Route: 048
     Dates: start: 20100610
  17. LABETALOL [Suspect]
     Active Substance: LABETALOL\LABETALOL HYDROCHLORIDE
     Indication: Product used for unknown indication
     Dosage: UNK
     Route: 048
  18. LABETALOL [Suspect]
     Active Substance: LABETALOL\LABETALOL HYDROCHLORIDE
     Indication: Product used for unknown indication
     Route: 048
  19. LAMIVUDINE [Suspect]
     Active Substance: LAMIVUDINE
     Indication: Antiretroviral therapy
     Dosage: 300 MILLIGRAM, QD
     Route: 048
     Dates: start: 20090101, end: 20100610
  20. METFORMIN [Suspect]
     Active Substance: METFORMIN HYDROCHLORIDE
     Indication: Product used for unknown indication
     Dosage: UNK
     Route: 065
  21. NEVIRAPINE [Suspect]
     Active Substance: NEVIRAPINE
     Indication: Antiretroviral therapy
     Dosage: 400 MILLIGRAM, QD
     Route: 048
     Dates: start: 20090101, end: 20100610
  22. INSULIN ASPART [Suspect]
     Active Substance: INSULIN ASPART
     Indication: Product used for unknown indication
     Dosage: UNK
     Route: 065
  23. RITONAVIR [Suspect]
     Active Substance: RITONAVIR
     Indication: Antiviral treatment
     Route: 065
  24. RITONAVIR [Suspect]
     Active Substance: RITONAVIR
     Route: 048
     Dates: start: 20100610
  25. FOLATE SODIUM [Suspect]
     Active Substance: FOLATE SODIUM
  26. TENOFOVIR [Suspect]
     Active Substance: TENOFOVIR
     Indication: HIV infection
     Dosage: 300 MILLIGRAM, QD
     Route: 048
     Dates: start: 20100610
  27. TENOFOVIR [Suspect]
     Active Substance: TENOFOVIR
     Indication: Supplementation therapy
     Dosage: 1 DOSAGE FORM, QD (1 TABLET/CAPSULE DAILY)
     Route: 048
     Dates: start: 20171006, end: 20180205
  28. TENOFOVIR [Suspect]
     Active Substance: TENOFOVIR
     Dosage: 1 DOSAGE FORM
     Dates: start: 20170610, end: 20180205
  29. LOPINAVIR [Suspect]
     Active Substance: LOPINAVIR
     Indication: HIV infection
     Dosage: UNK
     Route: 048
     Dates: start: 20100610
  30. LOPINAVIR\RITONAVIR [Suspect]
     Active Substance: LOPINAVIR\RITONAVIR
     Indication: Antiviral treatment
     Dosage: UNK
     Route: 048
     Dates: start: 20100610
  31. LOPINAVIR\RITONAVIR [Suspect]
     Active Substance: LOPINAVIR\RITONAVIR
     Indication: HIV infection
  32. TRUVADA [Suspect]
     Active Substance: EMTRICITABINE\TENOFOVIR DISOPROXIL FUMARATE
     Indication: HIV infection
     Dosage: 1 DOSAGE FORM, QD;1 TABLET/CAPSULE, QD
     Route: 048
     Dates: start: 20180205
  33. TRUVADA [Suspect]
     Active Substance: EMTRICITABINE\TENOFOVIR DISOPROXIL FUMARATE
     Dosage: 1 DOSAGE FORM, QD; 1 TABLET, QD (REPORTED TWICE)
     Route: 048
     Dates: start: 20171006, end: 20180205
  34. TRUVADA [Suspect]
     Active Substance: EMTRICITABINE\TENOFOVIR DISOPROXIL FUMARATE
     Dosage: 1 DOSAGE FORM, QD;1 TABLET/CAPSULE, QD
     Route: 048
     Dates: start: 20180205
  35. VITAMIN B12 [Suspect]
     Active Substance: CYANOCOBALAMIN
     Indication: Supplementation therapy
     Dosage: UNK
     Route: 065
  36. VITAMIN B12 [Suspect]
     Active Substance: CYANOCOBALAMIN
     Dosage: UNK
     Route: 065
  37. ZIDOVUDINE [Suspect]
     Active Substance: ZIDOVUDINE
     Indication: Antiviral treatment
     Dosage: 800 MILLIGRAM, QD
     Route: 048
     Dates: start: 20100610
  38. ZIDOVUDINE [Suspect]
     Active Substance: ZIDOVUDINE
     Dosage: 600 MG, QD
     Route: 048
     Dates: start: 20090110, end: 20100610
  39. TENOFOVIR DISOPROXIL FUMARATE [Suspect]
     Active Substance: TENOFOVIR DISOPROXIL FUMARATE
     Indication: HIV infection
     Dosage: 1 DOSAGE FORM, QD
     Route: 048
     Dates: start: 20171006
  40. TENOFOVIR DISOPROXIL FUMARATE [Suspect]
     Active Substance: TENOFOVIR DISOPROXIL FUMARATE
     Dosage: 1 DOSAGE FORM
     Route: 048
     Dates: start: 20171006
  41. CYANOCOBALAMIN [Suspect]
     Active Substance: CYANOCOBALAMIN
     Indication: Supplementation therapy
     Route: 065
  42. FOLIC ACID [Suspect]
     Active Substance: FOLIC ACID
     Dosage: 1 DOSAGE FORM, ONCE A DAY (QD [1 TABLET/CAPSULE])
     Route: 048
  43. EMTRICITABINE [Suspect]
     Active Substance: EMTRICITABINE
     Dosage: UNK
  44. EMTRICITABINE [Suspect]
     Active Substance: EMTRICITABINE
     Dosage: 1 DOSAGE FORM, QD
     Route: 048
     Dates: start: 20170610, end: 20180205
  45. EMTRICITABINE [Suspect]
     Active Substance: EMTRICITABINE
     Dosage: 1 DOSAGE FORM, QD (1 TABLET/CAPSULE DAILY)
     Route: 048
     Dates: start: 20171006
  46. CYANOCOBALAMIN [Suspect]
     Active Substance: CYANOCOBALAMIN
     Dosage: UNK

REACTIONS (9)
  - Hepatic cytolysis [Fatal]
  - Caesarean section [Fatal]
  - Alanine aminotransferase increased [Fatal]
  - Exposure during pregnancy [Fatal]
  - Abortion spontaneous [Fatal]
  - Aspartate aminotransferase increased [Fatal]
  - Intentional product use issue [Fatal]
  - Off label use [Fatal]
  - Exposure during pregnancy [Recovered/Resolved]

NARRATIVE: CASE EVENT DATE: 20100629
